FAERS Safety Report 7305857-2 (Version None)
Quarter: 2011Q1

REPORT INFORMATION
  Report Type: 
  Country: None (occurrence: None)
  Receive Date: 20110222
  Receipt Date: 20110209
  Transmission Date: 20110831
  Serious: Yes (Other)
  Sender: FDA-Public Use
  Company Number: DE-ROCHE-760862

PATIENT
  Age: 70 Year
  Sex: Female

DRUGS (1)
  1. XELODA [Suspect]
     Route: 065

REACTIONS (1)
  - VISUAL ACUITY REDUCED [None]
